FAERS Safety Report 16583415 (Version 1)
Quarter: 2019Q3

REPORT INFORMATION
  Report Type: Spontaneous
  Country: FR (occurrence: FR)
  Receive Date: 20190717
  Receipt Date: 20190717
  Transmission Date: 20191004
  Serious: Yes (Hospitalization)
  Sender: FDA-Public Use
  Company Number: FR-TEVA-2019-FR-1078265

PATIENT
  Age: 83 Year
  Sex: Female
  Weight: 52 kg

DRUGS (9)
  1. GEMCITABINE. [Suspect]
     Active Substance: GEMCITABINE
     Indication: CHOLANGIOCARCINOMA
     Dosage: 1470 MILLIGRAM
     Route: 042
     Dates: start: 20181211, end: 20190520
  2. CHLORHYDRATE DE PAROXETINE ANHYDRE [Concomitant]
     Active Substance: PAROXETINE
     Dosage: 10 MILLIGRAM
     Route: 048
  3. DIAMICRON 60 MG, MODIFIED-RELEASE SPLIT TABLET [Concomitant]
     Dosage: 120 MILLIGRAM
     Route: 048
  4. LERCAN 10 MG, SEARED SKINTED TABLET [Concomitant]
     Dosage: 20 MILLIGRAM
     Route: 048
  5. ACTONEL 35 MG, FILMED TABLET [Concomitant]
     Route: 048
  6. CISPLATINE [Suspect]
     Active Substance: CISPLATIN
     Indication: CHOLANGIOCARCINOMA
     Dosage: 36 MILLIGRAM
     Route: 042
     Dates: start: 20181211, end: 20190212
  7. SKENAN L.P. 10 MG, EXTENDED-RELEASE MICROGRANULES IN CAPSULE [Concomitant]
     Dates: start: 20190122, end: 20190125
  8. ACTISKENAN 5 MG, CAPSULE [Concomitant]
     Active Substance: MORPHINE SULFATE
     Route: 048
     Dates: start: 20190112, end: 20190125
  9. SOTALOL (CHLORHYDRATE DE) [Concomitant]
     Active Substance: SOTALOL
     Dosage: 160 MILLIGRAM
     Route: 048

REACTIONS (2)
  - Vomiting [Recovered/Resolved]
  - Decreased appetite [Recovered/Resolved]

NARRATIVE: CASE EVENT DATE: 20190122
